FAERS Safety Report 7439884-1 (Version None)
Quarter: 2011Q2

REPORT INFORMATION
  Report Type: 
  Country: None (occurrence: None)
  Receive Date: 20110427
  Receipt Date: 20110419
  Transmission Date: 20111010
  Serious: Yes (Hospitalization, Other)
  Sender: FDA-Public Use
  Company Number: US-SANOFI-AVENTIS-2011SA025273

PATIENT
  Age: 86 Year
  Sex: Female
  Weight: 49 kg

DRUGS (9)
  1. LIPITOR [Suspect]
     Route: 048
     Dates: start: 20070901
  2. CAPTOPRIL [Suspect]
     Route: 065
  3. ISOSORBIDE DINITRATE [Suspect]
     Route: 065
     Dates: start: 20070901, end: 20071001
  4. NITRGLYCERIN TRANSDERMAL SYSTEM [Suspect]
     Route: 062
     Dates: start: 20071001
  5. CALCIUM [Concomitant]
  6. PLAVIX [Suspect]
     Route: 065
  7. ASPIRIN [Suspect]
     Route: 065
  8. CADUET [Suspect]
     Route: 048
  9. METOPROLOL [Concomitant]

REACTIONS (10)
  - HYPERSENSITIVITY [None]
  - CORONARY ARTERY OCCLUSION [None]
  - BLINDNESS [None]
  - HYPOACUSIS [None]
  - ANXIETY [None]
  - EATING DISORDER [None]
  - EYE HAEMORRHAGE [None]
  - BLOOD PRESSURE INCREASED [None]
  - BLINDNESS UNILATERAL [None]
  - FATIGUE [None]
